FAERS Safety Report 6522258-5 (Version None)
Quarter: 2009Q4

REPORT INFORMATION
  Report Type: 
  Country: None (occurrence: None)
  Receive Date: 20091229
  Receipt Date: 20091229
  Transmission Date: 20100525
  Serious: No
  Sender: FDA-Public Use
  Company Number: None

PATIENT
  Age: 47 Year
  Sex: Male
  Weight: 79 kg

DRUGS (11)
  1. FENTANYL-100 [Suspect]
     Indication: ANAESTHESIA
     Dosage: 1050 MCG IV IN OR
     Route: 042
     Dates: start: 20091113
  2. PROPOFOL [Concomitant]
  3. NICARDIPINE HYDROCHLORIDE [Concomitant]
  4. VEC [Concomitant]
  5. MANNITOL [Concomitant]
  6. EPHEDRINE [Concomitant]
  7. ATROPINE [Concomitant]
  8. DEXAMETHASONE [Concomitant]
  9. CEFAZOLIN [Concomitant]
  10. LIDOCAINE [Concomitant]
  11. NEOSTIGMINE [Concomitant]

REACTIONS (2)
  - DELAYED RECOVERY FROM ANAESTHESIA [None]
  - POST PROCEDURAL COMPLICATION [None]
